FAERS Safety Report 4546369-9 (Version None)
Quarter: 2005Q1

REPORT INFORMATION
  Report Type: 
  Country: None (occurrence: None)
  Receive Date: 20050103
  Receipt Date: 20041225
  Transmission Date: 20050727
  Serious: Yes (Death, Other)
  Sender: FDA-Public Use
  Company Number: 2004118775

PATIENT
  Age: 50 Year
  Sex: Male

DRUGS (1)
  1. CEFOBID [Suspect]
     Indication: OSTEOMYELITIS
     Dosage: 2 GRAM (1 GRAM, 2 IN 1 D), INTRAVENOUS
     Route: 042
     Dates: start: 20041213, end: 20041223

REACTIONS (1)
  - ANAPHYLACTIC SHOCK [None]
